FAERS Safety Report 8158442-7 (Version None)
Quarter: 2012Q1

REPORT INFORMATION
  Report Type: 
  Country: None (occurrence: None)
  Receive Date: 20120223
  Receipt Date: 20120221
  Transmission Date: 20120608
  Serious: No
  Sender: FDA-Public Use
  Company Number: US-PFIZER INC-2012046054

PATIENT
  Sex: Female
  Weight: 64.853 kg

DRUGS (6)
  1. CHANTIX [Suspect]
     Indication: SMOKING CESSATION THERAPY
     Dosage: 0.5 MG, 1X/DAY
     Route: 048
     Dates: start: 20060101, end: 20060101
  2. HYZAAR [Concomitant]
     Indication: HYPERTENSION
     Dosage: UNK
  3. AMARYL [Concomitant]
     Indication: DIABETES MELLITUS
     Dosage: UNK
  4. CHANTIX [Suspect]
     Dosage: 1 MG, 2X/DAY
     Route: 048
     Dates: start: 20060101, end: 20060101
  5. NORVASC [Concomitant]
     Indication: HYPERTENSION
     Dosage: UNK
  6. WELCHOL [Concomitant]
     Indication: BLOOD CHOLESTEROL INCREASED
     Dosage: UNK

REACTIONS (2)
  - INSOMNIA [None]
  - ABNORMAL DREAMS [None]
